FAERS Safety Report 13909736 (Version 1)
Quarter: 2017Q3

REPORT INFORMATION
  Report Type: Spontaneous
  Country: US (occurrence: US)
  Receive Date: 20170828
  Receipt Date: 20170828
  Transmission Date: 20171127
  Serious: No
  Sender: FDA-Public Use
  Company Number: US-ENDO PHARMACEUTICALS INC-2017-001075

PATIENT
  Sex: Female

DRUGS (3)
  1. PREDNISONE TABLETS [Suspect]
     Active Substance: PREDNISONE
     Indication: MITOCHONDRIAL DNA MUTATION
     Dosage: UNK UNK, UNKNOWN
     Route: 065
  2. METHYLPREDISOLONE [Suspect]
     Active Substance: METHYLPREDNISOLONE
     Indication: MITOCHONDRIAL DNA MUTATION
     Dosage: UNK UNK, UNKNOWN
     Route: 065
  3. MEDROL [Suspect]
     Active Substance: METHYLPREDNISOLONE
     Indication: MITOCHONDRIAL DNA MUTATION
     Dosage: UNK UNK, UNKNOWN
     Route: 065

REACTIONS (3)
  - Infection susceptibility increased [Unknown]
  - Off label use [Unknown]
  - Skin atrophy [Unknown]
